FAERS Safety Report 11615794 (Version 3)
Quarter: 2017Q2

REPORT INFORMATION
  Report Type: Spontaneous
  Country: US (occurrence: US)
  Receive Date: 20151009
  Receipt Date: 20170421
  Transmission Date: 20170829
  Serious: Yes (Other)
  Sender: FDA-Public Use
  Company Number: US-TEVA-599000ACC

PATIENT
  Sex: Female
  Weight: 81.72 kg

DRUGS (2)
  1. NEXPLANON [Concomitant]
     Active Substance: ETONOGESTREL
  2. PARAGARD T 380A [Suspect]
     Active Substance: COPPER
     Indication: CONTRACEPTION
     Route: 015
     Dates: start: 20150310, end: 20151001

REACTIONS (3)
  - Abortion spontaneous [Unknown]
  - Exposure during pregnancy [Unknown]
  - Pregnancy on contraceptive [Unknown]
